FAERS Safety Report 4431734-0 (Version None)
Quarter: 2004Q3

REPORT INFORMATION
  Report Type: 
  Country: None (occurrence: None)
  Receive Date: 20040818
  Receipt Date: 20040805
  Transmission Date: 20050211
  Serious: Yes (Hospitalization)
  Sender: FDA-Public Use
  Company Number: 192149

PATIENT
  Age: 57 Year
  Sex: Male

DRUGS (11)
  1. AVONEX [Suspect]
     Indication: MULTIPLE SCLEROSIS
     Dosage: 30 MCG QW IM
     Route: 030
  2. AUGMENTIN '125' [Concomitant]
  3. BUPROPION HCL [Concomitant]
  4. CEPHALEXIN [Concomitant]
  5. CLONAZEPAM [Concomitant]
  6. VICODIN [Concomitant]
  7. LOVENOX [Concomitant]
  8. GABAPENTIN [Concomitant]
  9. METOPROLOL [Concomitant]
  10. OMEPRAZOLE [Concomitant]
  11. TIZANIDINE HCL [Concomitant]

REACTIONS (1)
  - CELLULITIS STAPHYLOCOCCAL [None]
